FAERS Safety Report 9010734 (Version 2)
Quarter: 2013Q2

REPORT INFORMATION
  Report Type: Spontaneous
  Country: US (occurrence: US)
  Receive Date: 20130109
  Receipt Date: 20130411
  Transmission Date: 20140414
  Serious: No
  Sender: FDA-Public Use
  Company Number: US-009507513-1301USA003152

PATIENT
  Sex: Female
  Weight: 61.22 kg

DRUGS (2)
  1. NEXPLANON [Suspect]
     Indication: CONTRACEPTION
     Dosage: EVERY THREE YEARSS
     Route: 059
     Dates: start: 20120615, end: 20130408
  2. PROPRANOLOL HYDROCHLORIDE [Concomitant]
     Dosage: 10 MG

REACTIONS (4)
  - Implant site pain [Unknown]
  - Implant site swelling [Unknown]
  - Abdominal pain [Unknown]
  - Device dislocation [Unknown]
